FAERS Safety Report 4521663-6 (Version None)
Quarter: 2004Q4

REPORT INFORMATION
  Report Type: 
  Country: None (occurrence: None)
  Receive Date: 20041208
  Receipt Date: 20041208
  Transmission Date: 20050328
  Serious: No
  Sender: FDA-Public Use
  Company Number: None

PATIENT
  Sex: Female

DRUGS (1)
  1. BONTRIL [Suspect]
     Dates: start: 20031101, end: 20041101

REACTIONS (1)
  - CHEST PAIN [None]
